FAERS Safety Report 22306523 (Version 1)
Quarter: 2023Q2

REPORT INFORMATION
  Report Type: Spontaneous
  Country: BR (occurrence: None)
  Receive Date: 20230511
  Receipt Date: 20230511
  Transmission Date: 20230722
  Serious: Yes (Other)
  Sender: FDA-Public Use
  Company Number: 2023A108032

PATIENT
  Age: 61 Year
  Sex: Male

DRUGS (7)
  1. SEROQUEL [Suspect]
     Active Substance: QUETIAPINE FUMARATE
     Indication: Insomnia
     Dosage: 1.0 DOSAGE FORM 1.0X FOR DAY
  2. SEROQUEL [Suspect]
     Active Substance: QUETIAPINE FUMARATE
     Indication: Erectile dysfunction
     Dosage: 1.0 DOSAGE FORM 1.0X FOR DAY
  3. SEROQUEL [Suspect]
     Active Substance: QUETIAPINE FUMARATE
     Indication: Libido decreased
     Dosage: 1.0 DOSAGE FORM 1.0X FOR DAY
  4. VALIUM [Concomitant]
     Active Substance: DIAZEPAM
     Indication: Libido decreased
     Dosage: 10.0MG UNKNOWN
     Dates: start: 2004
  5. VALIUM [Concomitant]
     Active Substance: DIAZEPAM
     Indication: Libido decreased
     Dosage: 5.0ML UNKNOWN
  6. OMEPRAZOLE [Concomitant]
     Active Substance: OMEPRAZOLE
     Indication: Reflux gastritis
  7. CIMETIDINE [Concomitant]
     Active Substance: CIMETIDINE
     Indication: Reflux gastritis

REACTIONS (4)
  - Erectile dysfunction [Unknown]
  - Libido decreased [Unknown]
  - Product use in unapproved indication [Unknown]
  - Off label use [Not Recovered/Not Resolved]
